FAERS Safety Report 8886970 (Version 2)
Quarter: 2013Q4

REPORT INFORMATION
  Report Type: Report from Study
  Country: DK (occurrence: DK)
  Receive Date: 20121105
  Receipt Date: 20131108
  Transmission Date: 20140711
  Serious: Yes (Death, Hospitalization, Other)
  Sender: FDA-Public Use
  Company Number: DK-BRISTOL-MYERS SQUIBB COMPANY-17074782

PATIENT
  Age: 69 Year
  Sex: Female
  Weight: 65.2 kg

DRUGS (9)
  1. CARBOPLATIN INJECTION [Suspect]
     Indication: FALLOPIAN TUBE CANCER
     Dosage: INTERRUPTED ON 28MAR12.LAST DOSE PRIOR TO SAE:07MAR12
     Route: 042
     Dates: start: 20120216
  2. CARBOPLATIN INJECTION [Suspect]
     Indication: MALIGNANT PERITONEAL NEOPLASM
     Dosage: INTERRUPTED ON 28MAR12.LAST DOSE PRIOR TO SAE:07MAR12
     Route: 042
     Dates: start: 20120216
  3. CARBOPLATIN INJECTION [Suspect]
     Indication: OVARIAN EPITHELIAL CANCER
     Dosage: INTERRUPTED ON 28MAR12.LAST DOSE PRIOR TO SAE:07MAR12
     Route: 042
     Dates: start: 20120216
  4. PACLITAXEL [Suspect]
     Indication: FALLOPIAN TUBE CANCER
     Dosage: INTERRUPTED ON 28MAR12.LAST DOSE PRIOR TO SAE:07MAR12
     Route: 042
     Dates: start: 20120216
  5. PACLITAXEL [Suspect]
     Indication: MALIGNANT PERITONEAL NEOPLASM
     Dosage: INTERRUPTED ON 28MAR12.LAST DOSE PRIOR TO SAE:07MAR12
     Route: 042
     Dates: start: 20120216
  6. PACLITAXEL [Suspect]
     Indication: OVARIAN EPITHELIAL CANCER
     Dosage: INTERRUPTED ON 28MAR12.LAST DOSE PRIOR TO SAE:07MAR12
     Route: 042
     Dates: start: 20120216
  7. BEVACIZUMAB [Suspect]
     Indication: FALLOPIAN TUBE CANCER
     Dosage: INTERRUPTED ON 28MAR12.LAST DOSE PRIOR TO SAE:07MAR12
     Route: 042
     Dates: start: 20120216
  8. BEVACIZUMAB [Suspect]
     Indication: OVARIAN EPITHELIAL CANCER
     Dosage: INTERRUPTED ON 28MAR12.LAST DOSE PRIOR TO SAE:07MAR12
     Route: 042
     Dates: start: 20120216
  9. BEVACIZUMAB [Suspect]
     Indication: MALIGNANT PERITONEAL NEOPLASM
     Dosage: INTERRUPTED ON 28MAR12.LAST DOSE PRIOR TO SAE:07MAR12
     Route: 042
     Dates: start: 20120216

REACTIONS (3)
  - Malignant neoplasm progression [Fatal]
  - Peritoneal abscess [Fatal]
  - Multi-organ failure [Unknown]
